FAERS Safety Report 10042880 (Version 1)
Quarter: 2014Q1

REPORT INFORMATION
  Report Type: Spontaneous
  Country: US (occurrence: US)
  Receive Date: 20140328
  Receipt Date: 20140328
  Transmission Date: 20141002
  Serious: Yes (Death)
  Sender: FDA-Public Use
  Company Number: US-ROCHE-1373182

PATIENT
  Age: 68 Year
  Sex: Male
  Weight: 56.75 kg

DRUGS (1)
  1. XELODA [Suspect]
     Indication: PANCREATIC CARCINOMA
     Route: 048
     Dates: start: 20140227

REACTIONS (1)
  - Death [Fatal]
